FAERS Safety Report 6538049-5 (Version None)
Quarter: 2010Q1

REPORT INFORMATION
  Report Type: 
  Country: None (occurrence: None)
  Receive Date: 20100111
  Receipt Date: 20091228
  Transmission Date: 20100710
  Serious: Yes (Life-Threatening, Hospitalization)
  Sender: FDA-Public Use
  Company Number: DE-1180140

PATIENT
  Age: 72 Year
  Sex: Female

DRUGS (2)
  1. FLUORESCITE [Suspect]
     Indication: ANGIOGRAM RETINA
     Dosage: 3 ML INTRAVENOUS BOLUS
     Route: 040
  2. BISOPROLOL (BISOPROLOL FUMARATE) [Concomitant]

REACTIONS (9)
  - ASTHENIA [None]
  - CIRCULATORY COLLAPSE [None]
  - DIZZINESS [None]
  - DYSPNOEA [None]
  - FATIGUE [None]
  - HYPERHIDROSIS [None]
  - LOSS OF CONSCIOUSNESS [None]
  - PALPITATIONS [None]
  - RESPIRATORY DISTRESS [None]
